FAERS Safety Report 21268247 (Version 1)
Quarter: 2022Q3

REPORT INFORMATION
  Report Type: Report from Study
  Country: AU (occurrence: None)
  Receive Date: 20220830
  Receipt Date: 20220830
  Transmission Date: 20221027
  Serious: Yes (Hospitalization)
  Sender: FDA-Public Use
  Company Number: 2022A294014

PATIENT
  Sex: Male

DRUGS (1)
  1. FASENRA [Suspect]
     Active Substance: BENRALIZUMAB
     Indication: Asthma
     Route: 058
     Dates: start: 20220304

REACTIONS (5)
  - Dizziness [Unknown]
  - Hypertension [Unknown]
  - Balance disorder [Unknown]
  - Iron deficiency [Unknown]
  - Drug ineffective [Unknown]
